FAERS Safety Report 6196326-4 (Version None)
Quarter: 2009Q2

REPORT INFORMATION
  Report Type: 
  Country: None (occurrence: None)
  Receive Date: 20090520
  Receipt Date: 20090506
  Transmission Date: 20091009
  Serious: Yes (Hospitalization, Other)
  Sender: FDA-Public Use
  Company Number: US-ALEXION-A200900245

PATIENT
  Sex: Male

DRUGS (2)
  1. SOLIRIS [Suspect]
     Indication: PAROXYSMAL NOCTURNAL HAEMOGLOBINURIA
     Dosage: UNK
     Route: 042
     Dates: start: 20070614
  2. SOLIRIS [Suspect]
     Dosage: 900 MG, Q2W
     Route: 042
     Dates: start: 20071117, end: 20090306

REACTIONS (11)
  - ANAEMIA [None]
  - BLOOD BILIRUBIN INCREASED [None]
  - EUTHYROID SICK SYNDROME [None]
  - FATIGUE [None]
  - HAEMOLYSIS [None]
  - HEART RATE INCREASED [None]
  - MENINGITIS MENINGOCOCCAL [None]
  - MENINGOCOCCAL SEPSIS [None]
  - PAIN [None]
  - PLATELET COUNT DECREASED [None]
  - SINUSITIS [None]
